FAERS Safety Report 9912163 (Version 1)
Quarter: 2014Q1

REPORT INFORMATION
  Report Type: Spontaneous
  Country: JP (occurrence: JP)
  Receive Date: 20140220
  Receipt Date: 20140220
  Transmission Date: 20141002
  Serious: Yes (Other)
  Sender: FDA-Public Use
  Company Number: JP-BRISTOL-MYERS SQUIBB COMPANY-20200010

PATIENT
  Age: 71 Year
  Sex: Female

DRUGS (3)
  1. ERBITUX SOLN FOR INF 5MG/ML [Suspect]
     Indication: SQUAMOUS CELL CARCINOMA OF HEAD AND NECK
     Dosage: 520MG/M214AUG13?374MG/M221AUG13TO28AUG13 ?370MG/M204SEP13TO18SEP13 ?250MG/M216OCT13TO27NOV13.
     Route: 041
     Dates: start: 20130814, end: 20131127
  2. DOCETAXEL [Concomitant]
     Indication: SQUAMOUS CELL CARCINOMA OF HEAD AND NECK
     Dosage: 14-AUG-2013 TO 14-AUG-2013-112 MG/M2?04-SEP-2013 TO 04-SEP-2013-89 MG/M2.
     Route: 041
     Dates: start: 20130814, end: 20130904
  3. CISPLATIN [Concomitant]
     Indication: SQUAMOUS CELL CARCINOMA OF HEAD AND NECK
     Dosage: 112 MG/M2-14-AUG-2013 TO 14-AUG-2013?89 MG/M2-04-SEP-2013 TO 04-SEP-2013.
     Route: 041
     Dates: start: 20130814, end: 20130904

REACTIONS (13)
  - Laryngeal oedema [Recovered/Resolved]
  - Dysgeusia [Unknown]
  - Alopecia [Unknown]
  - Oedema [Unknown]
  - Constipation [Unknown]
  - Dysphagia [Unknown]
  - Dry mouth [Unknown]
  - Stomatitis [Unknown]
  - Dermatitis acneiform [Unknown]
  - Skin reaction [Unknown]
  - Nausea [Unknown]
  - Decreased appetite [Unknown]
  - Radiation skin injury [Unknown]
